FAERS Safety Report 8918368 (Version 1)
Quarter: 2012Q4

REPORT INFORMATION
  Report Type: 
  Country: US (occurrence: US)
  Receive Date: 20121120
  Receipt Date: 20121120
  Transmission Date: 20130627
  Serious: No
  Sender: FDA-Public Use
  Company Number: US-ASTRAZENECA-2012SE26535

PATIENT
  Age: 59 Year
  Sex: Female
  Weight: 73.5 kg

DRUGS (4)
  1. NEXIUM [Suspect]
     Indication: GASTROOESOPHAGEAL REFLUX DISEASE
     Route: 048
  2. CLARINEX [Concomitant]
     Indication: SEASONAL ALLERGY
  3. AMLODIPINE [Concomitant]
     Indication: BLOOD PRESSURE
  4. LIPITOR [Concomitant]
     Indication: BLOOD CHOLESTEROL

REACTIONS (2)
  - Eye pain [Unknown]
  - Periorbital oedema [Unknown]
